FAERS Safety Report 24323396 (Version 2)
Quarter: 2024Q3

REPORT INFORMATION
  Report Type: Report from Study
  Country: JP (occurrence: JP)
  Receive Date: 20240916
  Receipt Date: 20240926
  Transmission Date: 20241016
  Serious: Yes (Other)
  Sender: UCB
  Company Number: JP-UCBJ-CD202408347UCBPHAPROD

PATIENT
  Age: 37 Year
  Sex: Male

DRUGS (1)
  1. FENFLURAMINE HYDROCHLORIDE [Suspect]
     Active Substance: FENFLURAMINE HYDROCHLORIDE
     Indication: Severe myoclonic epilepsy of infancy
     Dosage: UNK
     Route: 048
     Dates: start: 20240104

REACTIONS (1)
  - Aortic valve incompetence [Unknown]
